FAERS Safety Report 20530284 (Version 1)
Quarter: 2022Q1

REPORT INFORMATION
  Report Type: Spontaneous
  Country: PL (occurrence: PL)
  Receive Date: 20220301
  Receipt Date: 20220301
  Transmission Date: 20220423
  Serious: Yes (Other)
  Sender: FDA-Public Use
  Company Number: PL-NOVARTISPH-NVSC2022PL042186

PATIENT
  Age: 49 Year
  Sex: Male

DRUGS (1)
  1. MIDOSTAURIN [Suspect]
     Active Substance: MIDOSTAURIN
     Indication: Product used for unknown indication
     Dosage: 200 MG, QD
     Route: 065
     Dates: start: 20210730, end: 20211202

REACTIONS (8)
  - Mast cell activation syndrome [Unknown]
  - Anaphylactic shock [Unknown]
  - Ascites [Recovering/Resolving]
  - Hypoalbuminaemia [Unknown]
  - Mastocytosis [Unknown]
  - Tryptase increased [Unknown]
  - Disease progression [Unknown]
  - Drug ineffective [Unknown]

NARRATIVE: CASE EVENT DATE: 20211101
